FAERS Safety Report 20407194 (Version 1)
Quarter: 2022Q1

REPORT INFORMATION
  Report Type: Spontaneous
  Country: US (occurrence: None)
  Receive Date: 20220131
  Receipt Date: 20220131
  Transmission Date: 20220423
  Serious: Yes (Other)
  Sender: FDA-Public Use
  Company Number: None

PATIENT
  Age: 85 Year
  Sex: Female

DRUGS (2)
  1. RASUVO [Suspect]
     Active Substance: METHOTREXATE SODIUM
     Indication: Rheumatoid arthritis
     Route: 058
     Dates: start: 20180328
  2. Enbrel 50mg/1 ml [Concomitant]
     Dates: start: 20180328

REACTIONS (2)
  - Injection site pain [None]
  - Product storage error [None]

NARRATIVE: CASE EVENT DATE: 20220125
